FAERS Safety Report 16979120 (Version 40)
Quarter: 2024Q1

REPORT INFORMATION
  Report Type: Report from Study
  Country: CA (occurrence: CA)
  Receive Date: 20191031
  Receipt Date: 20240307
  Transmission Date: 20240410
  Serious: Yes (Hospitalization, Disabling, Other)
  Sender: FDA-Public Use
  Company Number: CA-KOREA IPSEN PHARMA-2019-19644

PATIENT
  Age: 51 Year
  Sex: Male
  Weight: 90.71 kg

DRUGS (5)
  1. LANREOTIDE ACETATE [Suspect]
     Active Substance: LANREOTIDE ACETATE
     Indication: Gastroenteropancreatic neuroendocrine tumour disease
     Dosage: CUMULATIVE DOSE : 960 MG (TILL 12-APR-2020) ON 10-MAY-2020, CUMULATIVE DOSE WAS 1080 MG; VIA DEEP SU
     Route: 058
     Dates: start: 20190930
  2. PERINDOPRIL [Concomitant]
     Active Substance: PERINDOPRIL
     Indication: Hypertension
  3. LOVENOX [Concomitant]
     Active Substance: ENOXAPARIN SODIUM
     Route: 058
     Dates: start: 20200829, end: 2020
  4. CANDESARTAN [Concomitant]
     Active Substance: CANDESARTAN
     Indication: Hypertension
     Dates: start: 20220704
  5. CANDESARTAN [Concomitant]
     Active Substance: CANDESARTAN
     Dates: start: 20230720

REACTIONS (35)
  - Small intestinal obstruction [Recovering/Resolving]
  - Incision site complication [Recovered/Resolved]
  - Nephrolithiasis [Not Recovered/Not Resolved]
  - Ureteric stenosis [Recovering/Resolving]
  - Discomfort [Recovering/Resolving]
  - Diarrhoea [Recovered/Resolved]
  - Injection site pain [Recovered/Resolved]
  - Muscle tightness [Recovered/Resolved]
  - Heart rate increased [Recovered/Resolved]
  - Injection site haemorrhage [Recovered/Resolved]
  - Abdominal discomfort [Recovered/Resolved]
  - Flushing [Recovered/Resolved]
  - Off label use [Unknown]
  - Frequent bowel movements [Not Recovered/Not Resolved]
  - Sensitive skin [Recovered/Resolved]
  - Abdominal discomfort [Recovered/Resolved]
  - Abdominal pain [Recovered/Resolved]
  - Chest discomfort [Recovering/Resolving]
  - Feeling abnormal [Recovered/Resolved]
  - Device use issue [Unknown]
  - Injection site haemorrhage [Recovered/Resolved]
  - Body temperature increased [Recovered/Resolved]
  - Body temperature increased [Recovered/Resolved]
  - Inappropriate schedule of product administration [Unknown]
  - Product packaging issue [Unknown]
  - Hypertension [Not Recovered/Not Resolved]
  - Back pain [Not Recovered/Not Resolved]
  - Swelling [Recovered/Resolved]
  - Injection site pain [Recovered/Resolved]
  - Sunburn [Recovered/Resolved]
  - Injection site nodule [Recovering/Resolving]
  - Emotional distress [Not Recovered/Not Resolved]
  - Abdominal pain [Recovered/Resolved]
  - Back pain [Recovered/Resolved]
  - Pain [Recovering/Resolving]

NARRATIVE: CASE EVENT DATE: 20191001
